FAERS Safety Report 15720433 (Version 4)
Quarter: 2019Q1

REPORT INFORMATION
  Report Type: Spontaneous
  Country: PT (occurrence: PT)
  Receive Date: 20181213
  Receipt Date: 20190215
  Transmission Date: 20190417
  Serious: Yes (Other)
  Sender: FDA-Public Use
  Company Number: PT-009507513-1812PRT005557

PATIENT
  Age: 56 Year
  Sex: Female

DRUGS (10)
  1. FENOFIBRATE. [Suspect]
     Active Substance: FENOFIBRATE
     Dosage: 145 MILLIGRAM, ONCE A DAY (ALSO REPORTED AS 150 MG, ID)
  2. FLUOXETINE [Suspect]
     Active Substance: FLUOXETINE HYDROCHLORIDE
     Dosage: 20 MG, DAILY (ID)
     Route: 065
  3. SITAGLIPTIN PHOSPHATE (+) METFORMIN HYDROCHLORIDE [Suspect]
     Active Substance: METFORMIN HYDROCHLORIDE\SITAGLIPTIN PHOSPHATE
     Dosage: 1 DOSAGE FORM (50/1000 MILLIGRAM), DAILY
     Route: 048
     Dates: start: 201703
  4. SITAGLIPTIN PHOSPHATE (+) METFORMIN HYDROCHLORIDE [Suspect]
     Active Substance: METFORMIN HYDROCHLORIDE\SITAGLIPTIN PHOSPHATE
     Dosage: 2 DOSAGE FORM (2X 50/1000 MILLIGRAM) DAILY
     Route: 048
  5. NEBIVOLOL. [Suspect]
     Active Substance: NEBIVOLOL
     Indication: HYPERTENSION
     Dosage: 5 MG, ONCE A DAY (ID)
     Route: 065
  6. ENALAPRIL MALEATE (+) LERCANIDIPINE HYDROCHLORIDE [Suspect]
     Active Substance: ENALAPRIL MALEATE\LERCANIDIPINE HYDROCHLORIDE
     Indication: HYPERTENSION
     Dosage: 20 MG, ONCE A DAY (ID)
     Route: 065
     Dates: end: 201610
  7. ENALAPRIL MALEATE (+) LERCANIDIPINE HYDROCHLORIDE [Suspect]
     Active Substance: ENALAPRIL MALEATE\LERCANIDIPINE HYDROCHLORIDE
     Dosage: 20 MG, ONCE A DAY (ID)
     Route: 065
     Dates: start: 201703
  8. NEBIVOLOL. [Suspect]
     Active Substance: NEBIVOLOL
     Dosage: 5 MG, ONCE A DAY (ID)
     Route: 065
     Dates: start: 201703
  9. ROSUVASTATIN. [Suspect]
     Active Substance: ROSUVASTATIN
     Dosage: 5 MG, DAILY (ID)
     Route: 065
  10. SITAGLIPTIN PHOSPHATE (+) METFORMIN HYDROCHLORIDE [Suspect]
     Active Substance: METFORMIN HYDROCHLORIDE\SITAGLIPTIN PHOSPHATE
     Indication: DIABETES MELLITUS
     Dosage: 1 DOSAGE FORM (50/1000 MILLIGRAM), DAILY
     Route: 048

REACTIONS (8)
  - Condition aggravated [None]
  - Treatment noncompliance [Unknown]
  - Dyslipidaemia [None]
  - Glycosylated haemoglobin increased [None]
  - Hypertension [None]
  - Hepatic steatosis [None]
  - Diabetes mellitus inadequate control [Recovering/Resolving]
  - Inappropriate schedule of product administration [Unknown]
